FAERS Safety Report 22229391 (Version 1)
Quarter: 2023Q2

REPORT INFORMATION
  Report Type: Spontaneous
  Country: US (occurrence: US)
  Receive Date: 20230419
  Receipt Date: 20230419
  Transmission Date: 20230721
  Serious: No
  Sender: FDA-Public Use
  Company Number: US-ABBVIE-4714372

PATIENT
  Age: 61 Year
  Sex: Female
  Weight: 83.9 kg

DRUGS (6)
  1. HUMIRA [Suspect]
     Active Substance: ADALIMUMAB
     Indication: Rheumatoid arthritis
     Route: 058
     Dates: start: 20220819, end: 20221014
  2. HUMIRA [Suspect]
     Active Substance: ADALIMUMAB
     Route: 058
     Dates: start: 20230315
  3. ACYCLOVIR [Concomitant]
     Active Substance: ACYCLOVIR
     Indication: Infection prophylaxis
     Dosage: ONECE A DAY
  4. LOSARTAN [Concomitant]
     Active Substance: LOSARTAN
     Indication: Hypertension
     Dosage: 10 MILLIGRAM
  5. HYDROCHLOROTHIAZIDE [Concomitant]
     Active Substance: HYDROCHLOROTHIAZIDE
     Indication: Hypertension
  6. MONTELUKAST [Concomitant]
     Active Substance: MONTELUKAST SODIUM
     Indication: Asthma

REACTIONS (9)
  - Genital rash [Recovered/Resolved]
  - Vulvovaginal swelling [Recovering/Resolving]
  - Vulvovaginal swelling [Recovered/Resolved]
  - Vulvovaginal pruritus [Recovering/Resolving]
  - Skin haemorrhage [Recovered/Resolved]
  - Skin exfoliation [Recovered/Resolved]
  - Red blood cell sedimentation rate increased [Unknown]
  - Genital rash [Recovering/Resolving]
  - Vulvovaginal pruritus [Recovered/Resolved]

NARRATIVE: CASE EVENT DATE: 20221001
